FAERS Safety Report 12740270 (Version 2)
Quarter: 2016Q3

REPORT INFORMATION
  Report Type: Spontaneous
  Country: US (occurrence: US)
  Receive Date: 20160913
  Receipt Date: 20160922
  Transmission Date: 20161109
  Serious: Yes (Other)
  Sender: FDA-Public Use
  Company Number: US-MYLANLABS-2016M1037783

PATIENT

DRUGS (1)
  1. ENALAPRIL MALEATE TABLETS, USP [Suspect]
     Active Substance: ENALAPRIL MALEATE
     Indication: BLOOD PRESSURE MANAGEMENT
     Dosage: 5 MG, QD
     Route: 048
     Dates: start: 201508, end: 201602

REACTIONS (9)
  - Bronchitis [Recovered/Resolved]
  - Influenza like illness [Recovered/Resolved]
  - Muscle strain [Recovered/Resolved]
  - Rib fracture [Recovering/Resolving]
  - Pleurisy [Recovered/Resolved]
  - Cough [Recovered/Resolved]
  - Fall [Recovered/Resolved]
  - Contusion [Recovering/Resolving]
  - Muscle rupture [Recovered/Resolved]

NARRATIVE: CASE EVENT DATE: 201508
